FAERS Safety Report 23622301 (Version 4)
Quarter: 2024Q2

REPORT INFORMATION
  Report Type: Spontaneous
  Country: US (occurrence: US)
  Receive Date: 20240312
  Receipt Date: 20240531
  Transmission Date: 20240716
  Serious: No
  Sender: FDA-Public Use
  Company Number: US-PFIZER INC-202400049715

PATIENT
  Age: 14 Year
  Sex: Male
  Weight: 52.608 kg

DRUGS (3)
  1. GENOTROPIN [Suspect]
     Active Substance: SOMATROPIN
     Dosage: ONCE DAILY 6 DAY/WEEK
     Dates: start: 202301
  2. GENOTROPIN [Concomitant]
     Active Substance: SOMATROPIN
     Indication: Blood growth hormone
     Dosage: UNK
     Route: 030
     Dates: start: 201801
  3. GENOTROPIN [Concomitant]
     Active Substance: SOMATROPIN
     Indication: Short stature

REACTIONS (2)
  - Drug dose omission by device [Unknown]
  - Device mechanical issue [Unknown]
